FAERS Safety Report 5992101-1 (Version None)
Quarter: 2008Q4

REPORT INFORMATION
  Report Type: 
  Country: None (occurrence: None)
  Receive Date: 20081211
  Receipt Date: 20081201
  Transmission Date: 20090506
  Serious: Yes (Hospitalization, Other)
  Sender: FDA-Public Use
  Company Number: US-AMGEN-QUU321900

PATIENT
  Sex: Male

DRUGS (4)
  1. ENBREL [Suspect]
     Indication: RHEUMATOID ARTHRITIS
     Route: 064
  2. PREDNISONE TAB [Concomitant]
     Route: 064
  3. IBUPROFEN [Concomitant]
     Route: 064
  4. VITAMIN TAB [Concomitant]
     Route: 064

REACTIONS (3)
  - AUTISM [None]
  - FEEDING DISORDER NEONATAL [None]
  - PREMATURE BABY [None]
